FAERS Safety Report 8057366-3 (Version None)
Quarter: 2012Q1

REPORT INFORMATION
  Report Type: 
  Country: None (occurrence: None)
  Receive Date: 20120119
  Receipt Date: 20120117
  Transmission Date: 20120608
  Serious: Yes (Hospitalization)
  Sender: FDA-Public Use
  Company Number: US-GILEAD-2011-0048674

PATIENT
  Sex: Female

DRUGS (2)
  1. LETAIRIS [Suspect]
     Indication: PULMONARY HYPERTENSION
     Dosage: 10 MG, UNK
     Route: 048
     Dates: start: 20080808
  2. LETAIRIS [Suspect]
     Indication: SARCOIDOSIS

REACTIONS (3)
  - GAIT DISTURBANCE [None]
  - PNEUMONIA [None]
  - DYSPNOEA [None]
